FAERS Safety Report 14092109 (Version 1)
Quarter: 2017Q4

REPORT INFORMATION
  Report Type: Report from Study
  Country: US (occurrence: US)
  Receive Date: 20171016
  Receipt Date: 20171016
  Transmission Date: 20180321
  Serious: Yes (Other)
  Sender: FDA-Public Use
  Company Number: US-GILEAD-2017-0297243

PATIENT
  Age: 63 Year
  Sex: Female
  Weight: 58 kg

DRUGS (22)
  1. ZAROXOLYN [Concomitant]
     Active Substance: METOLAZONE
  2. ACETAMINOPHEN. [Concomitant]
     Active Substance: ACETAMINOPHEN
  3. XANAX [Concomitant]
     Active Substance: ALPRAZOLAM
  4. CHERATUSSIN AC [Concomitant]
     Active Substance: CODEINE PHOSPHATE\GUAIFENESIN
  5. ELIQUIS [Concomitant]
     Active Substance: APIXABAN
  6. SYNTHROID [Concomitant]
     Active Substance: LEVOTHYROXINE SODIUM
  7. CHLORASEPTIC MAX                   /00793801/ [Concomitant]
  8. ADCIRCA [Concomitant]
     Active Substance: TADALAFIL
  9. COENZYME Q10 [Concomitant]
     Active Substance: UBIDECARENONE
  10. CRESTOR [Concomitant]
     Active Substance: ROSUVASTATIN CALCIUM
  11. CELLCEPT [Concomitant]
     Active Substance: MYCOPHENOLATE MOFETIL\MYCOPHENOLATE MOFETIL HYDROCHLORIDE
  12. DELTASONE [Concomitant]
     Active Substance: PREDNISONE
  13. RISEDRONATE [Concomitant]
     Active Substance: RISEDRONATE SODIUM
  14. CALCIUM VITAMIN D3 [Concomitant]
  15. FLONASE [Concomitant]
     Active Substance: FLUTICASONE PROPIONATE
  16. ALDACTONE [Concomitant]
     Active Substance: SPIRONOLACTONE
  17. DEMADEX [Concomitant]
     Active Substance: TORSEMIDE
  18. AMBRISENTAN [Suspect]
     Active Substance: AMBRISENTAN
     Indication: PULMONARY ARTERIAL HYPERTENSION
     Dosage: 10 MG, QD
     Route: 048
     Dates: start: 20141016
  19. REMODULIN [Suspect]
     Active Substance: TREPROSTINIL
     Indication: PRODUCT USED FOR UNKNOWN INDICATION
     Dosage: 1 MG, UNK
     Route: 065
  20. NORPRAMIN                          /00043102/ [Concomitant]
  21. DEXILANT [Concomitant]
     Active Substance: DEXLANSOPRAZOLE
  22. ZANTAC [Concomitant]
     Active Substance: RANITIDINE HYDROCHLORIDE

REACTIONS (4)
  - Syncope [Unknown]
  - Oxygen saturation abnormal [Unknown]
  - Weight increased [Unknown]
  - Dyspnoea [Recovering/Resolving]

NARRATIVE: CASE EVENT DATE: 20170913
